FAERS Safety Report 24145420 (Version 1)
Quarter: 2024Q3

REPORT INFORMATION
  Report Type: Spontaneous
  Country: GB (occurrence: GB)
  Receive Date: 20240729
  Receipt Date: 20240729
  Transmission Date: 20241016
  Serious: Yes (Other)
  Sender: TEVA
  Company Number: GB-MHRA-TPP49423561C11562390YC1721321484481

PATIENT
  Age: 5 Year
  Sex: Male
  Weight: 17 kg

DRUGS (4)
  1. MONTELUKAST [Suspect]
     Active Substance: MONTELUKAST SODIUM
     Indication: Ill-defined disorder
     Dosage: 4MG CHEWABLE TABLETS SUGAR FREE?TAKE ONE AT NIGHT
     Route: 065
     Dates: start: 20240419
  2. FLUTICASONE PROPIONATE [Concomitant]
     Active Substance: FLUTICASONE PROPIONATE
     Indication: Ill-defined disorder
     Dosage: INHALE 2 DOSES TWICE DAILY
     Route: 065
     Dates: start: 20240510
  3. ALBUTEROL [Concomitant]
     Active Substance: ALBUTEROL
     Indication: Ill-defined disorder
     Dosage: INHALE TWO DOSES FOUR TIMES A DAY WHEN REQUIRED...
     Route: 065
     Dates: start: 20240419
  4. BECLOMETHASONE DIPROPIONATE [Concomitant]
     Active Substance: BECLOMETHASONE DIPROPIONATE
     Indication: Ill-defined disorder
     Dosage: TWO PUFFS TO BE INHALED TWICE A DAY
     Route: 065
     Dates: start: 20240419, end: 20240510

REACTIONS (1)
  - Mood swings [Recovered/Resolved]
